FAERS Safety Report 8984297 (Version 2)
Quarter: 2013Q1

REPORT INFORMATION
  Report Type: Spontaneous
  Country: NO (occurrence: NO)
  Receive Date: 20121226
  Receipt Date: 20130116
  Transmission Date: 20140127
  Serious: Yes (Disabling, Congenital Anomaly)
  Sender: FDA-Public Use
  Company Number: NO-PFIZER INC-2012326053

PATIENT
  Sex: Male

DRUGS (1)
  1. CYKLOKAPRON [Suspect]
     Indication: PULMONARY HAEMORRHAGE
     Dosage: 500 MG, 3X/DAY
     Route: 064
     Dates: start: 20110221, end: 20110223

REACTIONS (2)
  - Maternal exposure timing unspecified [Recovered/Resolved with Sequelae]
  - Cerebral thrombosis [Recovered/Resolved with Sequelae]
